FAERS Safety Report 12721497 (Version 1)
Quarter: 2016Q3

REPORT INFORMATION
  Report Type: Spontaneous
  Country: US (occurrence: US)
  Receive Date: 20160906
  Receipt Date: 20160906
  Transmission Date: 20161109
  Serious: Yes (Other)
  Sender: FDA-Public Use
  Company Number: None

PATIENT
  Age: 63 Year
  Sex: Female
  Weight: 51.26 kg

DRUGS (5)
  1. MINIVELLE (ESTRADIOL TRANSDERMAL SYSTEM) [Concomitant]
  2. ESTRACE (VAGINAL CREAM) [Concomitant]
  3. TESTOSTERONE (COMPOUNDED CREAM) [Concomitant]
  4. MULTIPLE VITAMINS [Concomitant]
     Active Substance: VITAMINS
  5. PROGESTERONE 100 MG, 100 MG TEVA [Suspect]
     Active Substance: PROGESTERONE
     Indication: HORMONE REPLACEMENT THERAPY
     Route: 048
     Dates: start: 20160831, end: 20160831

REACTIONS (3)
  - Migraine [None]
  - Product substitution issue [None]
  - Dizziness [None]

NARRATIVE: CASE EVENT DATE: 20160831
